FAERS Safety Report 5243244-1 (Version None)
Quarter: 2007Q1

REPORT INFORMATION
  Report Type: 
  Country: None (occurrence: None)
  Receive Date: 20070221
  Receipt Date: 20070213
  Transmission Date: 20070707
  Serious: Yes (Death)
  Sender: FDA-Public Use
  Company Number: CA-PFIZER INC-2006154901

PATIENT
  Sex: Male
  Weight: 75.7 kg

DRUGS (10)
  1. SU-011,248 [Suspect]
     Indication: RENAL CELL CARCINOMA STAGE UNSPECIFIED
     Route: 048
     Dates: start: 20060902, end: 20061215
  2. FLUDROCORTISONE [Concomitant]
     Route: 048
  3. MORPHINE [Concomitant]
     Route: 048
     Dates: start: 20060831
  4. PROCHLORPERAZINE [Concomitant]
     Route: 048
     Dates: start: 20060914
  5. DEXAMETHASONE [Concomitant]
     Route: 048
     Dates: start: 20060920
  6. DOCUSATE SODIUM [Concomitant]
     Route: 048
  7. LANSOPRAZOLE [Concomitant]
     Route: 048
     Dates: start: 20061010
  8. CLONAZEPAM [Concomitant]
     Route: 048
     Dates: start: 20060727
  9. LEVOTHYROXINE SODIUM [Concomitant]
     Route: 048
     Dates: start: 20061128
  10. NAPROXEN [Concomitant]
     Route: 048
     Dates: start: 20060831

REACTIONS (2)
  - DISEASE PROGRESSION [None]
  - RENAL CELL CARCINOMA STAGE UNSPECIFIED [None]
